FAERS Safety Report 20714960 (Version 2)
Quarter: 2022Q2

REPORT INFORMATION
  Report Type: Spontaneous
  Country: AT (occurrence: AT)
  Receive Date: 20220415
  Receipt Date: 20220513
  Transmission Date: 20220721
  Serious: Yes (Other)
  Sender: FDA-Public Use
  Company Number: AT-PFM-2022-01987

PATIENT
  Age: 62 Year
  Sex: Male

DRUGS (6)
  1. CISPLATIN [Suspect]
     Active Substance: CISPLATIN
     Indication: Chemotherapy
     Dosage: UNK, (DOSE REDUCTION TO 87.5% FOR CYCLE 6)
     Route: 065
     Dates: end: 20200129
  2. CISPLATIN [Suspect]
     Active Substance: CISPLATIN
     Dosage: UNK
     Route: 065
  3. GEMCITABINE [Suspect]
     Active Substance: GEMCITABINE
     Indication: Chemotherapy
     Dosage: UNK
     Route: 065
  4. GEMCITABINE [Suspect]
     Active Substance: GEMCITABINE
     Dosage: UNK, DOSE REDUCTION TO 75% FOR CYCLE 5
     Route: 065
  5. VINFLUNINE DITARTRATE [Suspect]
     Active Substance: VINFLUNINE DITARTRATE
     Indication: Transitional cell carcinoma
     Dosage: UNK
     Route: 065
  6. ASTRAZENECA COVID-19 VACCINE [Concomitant]
     Active Substance: AZD-1222
     Indication: Product used for unknown indication
     Dosage: UNK
     Route: 065

REACTIONS (16)
  - Adrenal gland cancer metastatic [Unknown]
  - Metastases to muscle [Unknown]
  - White blood cell disorder [Unknown]
  - Metastases to bone [Unknown]
  - Metastases to liver [Unknown]
  - Retroperitoneal neoplasm metastatic [Unknown]
  - Constipation [Unknown]
  - Weight decreased [Recovered/Resolved]
  - Pancytopenia [Unknown]
  - Polyneuropathy [Unknown]
  - Vomiting [Unknown]
  - Asthenia [Recovered/Resolved]
  - Haemoglobin decreased [Unknown]
  - Alopecia [Recovered/Resolved]
  - Anaemia [Unknown]
  - Gamma-glutamyltransferase increased [Unknown]

NARRATIVE: CASE EVENT DATE: 20200101
